FAERS Safety Report 19736831 (Version 1)
Quarter: 2021Q3

REPORT INFORMATION
  Report Type: Spontaneous
  Country: US (occurrence: US)
  Receive Date: 20210823
  Receipt Date: 20210823
  Transmission Date: 20211014
  Serious: No
  Sender: FDA-Public Use
  Company Number: US-BAYER-2021-193498

PATIENT
  Sex: Female
  Weight: 78.91 kg

DRUGS (7)
  1. CIPROFLOXACIN. [Suspect]
     Active Substance: CIPROFLOXACIN
  2. FLAGYL [Concomitant]
     Active Substance: METRONIDAZOLE\METRONIDAZOLE HYDROCHLORIDE
  3. ALPRAZOLAM. [Concomitant]
     Active Substance: ALPRAZOLAM
     Dosage: 0.5 MG
     Dates: start: 20210331
  4. ERGOCALCIFEROL. [Concomitant]
     Active Substance: ERGOCALCIFEROL
     Dosage: 1250 ?G
     Dates: start: 20210513
  5. FLUOXETINE [Concomitant]
     Active Substance: FLUOXETINE HYDROCHLORIDE
     Dosage: 20 MG
     Dates: start: 20210217
  6. PFIZER?BIONTECH COVID?19 VACCINE [Concomitant]
     Active Substance: TOZINAMERAN
  7. ROSUVASTATIN. [Concomitant]
     Active Substance: ROSUVASTATIN
     Dosage: 10 MG
     Dates: start: 20210821

REACTIONS (3)
  - Drug ineffective [None]
  - Abdominal pain [None]
  - Diarrhoea [None]
